FAERS Safety Report 10068432 (Version 1)
Quarter: 2014Q2

REPORT INFORMATION
  Report Type: Spontaneous
  Country: US (occurrence: US)
  Receive Date: 20140409
  Receipt Date: 20140409
  Transmission Date: 20141212
  Serious: Yes (Other)
  Sender: FDA-Public Use
  Company Number: US-ASTRAZENECA-2014SE23154

PATIENT
  Age: 86 Year
  Sex: Male

DRUGS (2)
  1. BRILINTA [Suspect]
     Indication: ACUTE MYOCARDIAL INFARCTION
     Route: 048
     Dates: start: 201402, end: 20140401
  2. ASPIRIN [Concomitant]

REACTIONS (2)
  - Diarrhoea haemorrhagic [Unknown]
  - Haemoglobin decreased [Unknown]
